FAERS Safety Report 7793793-7 (Version None)
Quarter: 2011Q4

REPORT INFORMATION
  Report Type: 
  Country: None (occurrence: None)
  Receive Date: 20111003
  Receipt Date: 20110926
  Transmission Date: 20120403
  Serious: Yes (Hospitalization)
  Sender: FDA-Public Use
  Company Number: PHEH2011US04382

PATIENT
  Sex: Female
  Weight: 54 kg

DRUGS (4)
  1. CIPROFLOXACIN [Concomitant]
  2. TOBI [Suspect]
     Indication: CYSTIC FIBROSIS
     Dosage: UNK UKN, UNK
     Dates: start: 20110816, end: 20110916
  3. BACTRIM [Concomitant]
     Dosage: UNK UKN, UNK
  4. TOBI [Suspect]
     Indication: PSEUDOMONAS INFECTION

REACTIONS (2)
  - PULMONARY FUNCTION TEST DECREASED [None]
  - FORCED EXPIRATORY VOLUME ABNORMAL [None]
